FAERS Safety Report 21273577 (Version 1)
Quarter: 2022Q3

REPORT INFORMATION
  Report Type: Spontaneous
  Country: CA (occurrence: CA)
  Receive Date: 20220831
  Receipt Date: 20220831
  Transmission Date: 20221026
  Serious: Yes (Hospitalization, Other)
  Sender: FDA-Public Use
  Company Number: CA-BAYER-2022A118586

PATIENT
  Age: 61 Year
  Sex: Female
  Weight: 77 kg

DRUGS (15)
  1. ALEVE [Suspect]
     Active Substance: NAPROXEN SODIUM
     Indication: Fibromyalgia
     Dosage: 220 MG, QD
     Route: 048
  2. ALEVE [Suspect]
     Active Substance: NAPROXEN SODIUM
     Indication: Back pain
  3. CRESTOR [Concomitant]
     Active Substance: ROSUVASTATIN CALCIUM
  4. ASPIRIN [Concomitant]
     Active Substance: ASPIRIN
  5. LYRICA [Concomitant]
     Active Substance: PREGABALIN
  6. LASIX [Concomitant]
     Active Substance: FUROSEMIDE
  7. ESCITALOPRAM [Concomitant]
     Active Substance: ESCITALOPRAM OXALATE
  8. DULOXETINE HYDROCHLORIDE [Concomitant]
     Active Substance: DULOXETINE HYDROCHLORIDE
     Route: 048
  9. PLAVIX [Concomitant]
     Active Substance: CLOPIDOGREL BISULFATE
  10. CEFIXIME [Concomitant]
     Active Substance: CEFIXIME
  11. FLUTICASONE [Concomitant]
     Active Substance: FLUTICASONE
  12. CLONAZEPAM [Concomitant]
     Active Substance: CLONAZEPAM
  13. ATROPAIR [IPRATROPIUM BROMIDE] [Concomitant]
  14. CANDESARTAN [Concomitant]
     Active Substance: CANDESARTAN
  15. AMILORIDE [Concomitant]
     Active Substance: AMILORIDE

REACTIONS (4)
  - Gastrointestinal haemorrhage [Recovered/Resolved]
  - Gastric ulcer [Recovered/Resolved]
  - Duodenal ulcer [Recovered/Resolved]
  - Angiodysplasia [Recovered/Resolved]
